FAERS Safety Report 10564658 (Version 1)
Quarter: 2014Q4

REPORT INFORMATION
  Report Type: Spontaneous
  Country: CN (occurrence: CN)
  Receive Date: 20141104
  Receipt Date: 20141104
  Transmission Date: 20150529
  Serious: Yes (Hospitalization, Other)
  Sender: FDA-Public Use
  Company Number: CN-BRISTOL-MYERS SQUIBB COMPANY-21550710

PATIENT
  Age: 82 Year
  Sex: Male

DRUGS (1)
  1. GLUCOPHAGE [Suspect]
     Active Substance: METFORMIN HYDROCHLORIDE
     Indication: TYPE 2 DIABETES MELLITUS
     Route: 048
     Dates: start: 19940202, end: 20140517

REACTIONS (6)
  - Pyrexia [Unknown]
  - Coma [Not Recovered/Not Resolved]
  - Leukocytosis [Unknown]
  - Hypernatraemia [Unknown]
  - Granulocytosis [Unknown]
  - Medication error [Unknown]

NARRATIVE: CASE EVENT DATE: 20140517
